FAERS Safety Report 24433702 (Version 1)
Quarter: 2024Q4

REPORT INFORMATION
  Report Type: Spontaneous
  Country: FR (occurrence: FR)
  Receive Date: 20241014
  Receipt Date: 20241014
  Transmission Date: 20250114
  Serious: Yes (Other)
  Sender: MYLAN
  Company Number: None

PATIENT
  Age: 40 Year
  Sex: Female
  Weight: 52 kg

DRUGS (1)
  1. EPIPEN [Suspect]
     Active Substance: EPINEPHRINE
     Indication: Product used for unknown indication
     Dosage: 0.3 MILLIGRAM, TOTAL
     Route: 030
     Dates: start: 20240901, end: 20240901

REACTIONS (7)
  - Palpitations [Recovered/Resolved]
  - Injection site ischaemia [Recovered/Resolved]
  - Hypertension [Recovered/Resolved]
  - Product package associated injury [Recovered/Resolved]
  - Occupational exposure to product [Recovered/Resolved]
  - Device use error [Recovered/Resolved]
  - Accidental exposure to product [Unknown]

NARRATIVE: CASE EVENT DATE: 20240901
